FAERS Safety Report 8553592-5 (Version None)
Quarter: 2012Q3

REPORT INFORMATION
  Report Type: 
  Country: None (occurrence: None)
  Receive Date: 20120725
  Receipt Date: 20120725
  Transmission Date: 20120928
  Serious: No
  Sender: FDA-Public Use
  Company Number: None

PATIENT
  Age: 59 Year
  Sex: Male
  Weight: 73.4827 kg

DRUGS (3)
  1. INCIVEK [Concomitant]
  2. RIBASPHERE [Concomitant]
  3. PEGASYS [Suspect]
     Indication: HEPATITIS C
     Dosage: 180 MCG SUBCUTANEOUSLY ONCE
     Route: 058
     Dates: start: 20120606, end: 20120713

REACTIONS (3)
  - CONTUSION [None]
  - ANAEMIA [None]
  - PLATELET COUNT DECREASED [None]
